FAERS Safety Report 6032749-1 (Version None)
Quarter: 2009Q1

REPORT INFORMATION
  Report Type: 
  Country: None (occurrence: None)
  Receive Date: 20090109
  Receipt Date: 20081210
  Transmission Date: 20090719
  Serious: Yes (Hospitalization, Other)
  Sender: FDA-Public Use
  Company Number: DE-PFIZER INC-2008152854

PATIENT

DRUGS (41)
  1. SAB SIMPLEX [Suspect]
     Indication: CONSTIPATION
     Dosage: 10 ML, 2X/DAY
     Route: 048
     Dates: start: 20060503, end: 20060523
  2. DOXYCYCLINE HYCLATE [Suspect]
     Indication: PNEUMONIA
     Dosage: 100 MG, 2X/DAY
     Route: 048
     Dates: start: 20060429, end: 20060502
  3. LAMICTAL [Suspect]
     Indication: PROPHYLAXIS
     Dosage: 25 MG, 1X/DAY
     Route: 048
     Dates: start: 20060508
  4. LAMICTAL [Suspect]
     Dosage: 25 MG, 2X/DAY
  5. NOVALGIN [Suspect]
     Indication: PYREXIA
     Dosage: UNK
     Route: 048
     Dates: start: 20060418
  6. GENTAMYCIN SULFATE [Suspect]
     Indication: PNEUMONIA
     Dosage: 160 MG, 1X/DAY
     Route: 042
     Dates: start: 20060519, end: 20060525
  7. GENTAMYCIN SULFATE [Suspect]
     Indication: CYSTITIS
  8. CIPROFLOXACIN HCL [Suspect]
     Indication: PNEUMONIA
     Dosage: 400 MG, 2X/DAY
     Route: 042
     Dates: start: 20060519, end: 20060525
  9. KEPPRA [Suspect]
     Indication: PROPHYLAXIS
     Dosage: 500 MG, 2X/DAY
     Route: 048
     Dates: start: 20060430
  10. KEPPRA [Suspect]
     Dosage: 1000 MG, 2X/DAY
  11. METOCLOPRAMIDE [Suspect]
     Indication: NAUSEA
     Dosage: 20 GTT, 4X/DAY
     Route: 048
     Dates: start: 20060503
  12. METRONIDAZOLE [Suspect]
     Indication: PNEUMONIA
     Dosage: UNK
     Route: 048
     Dates: start: 20060519, end: 20060525
  13. METRONIDAZOLE [Suspect]
     Indication: CYSTITIS
  14. NULYTELY [Suspect]
     Indication: CONSTIPATION
     Dosage: UNK
     Route: 048
     Dates: start: 20060403, end: 20060523
  15. KALINOR-BRAUSETABLETTEN [Suspect]
     Indication: HYPOKALAEMIA
     Dosage: UNK
     Route: 048
     Dates: start: 20060406, end: 20060523
  16. VITAMIN B KOMPLEX [Suspect]
     Indication: ELECTROLYTE SUBSTITUTION THERAPY
     Dosage: UNK
     Route: 048
     Dates: start: 20060418, end: 20060523
  17. JONOSTERIL [Suspect]
     Indication: ELECTROLYTE SUBSTITUTION THERAPY
     Dosage: UNK
     Route: 042
     Dates: start: 20060415, end: 20060525
  18. TRANSTEC TTS [Suspect]
     Indication: PAIN
     Dosage: 35 UG, 1X/DAY
     Route: 062
     Dates: start: 20060403
  19. EMBOLEX [Suspect]
     Indication: THROMBOSIS PROPHYLAXIS
     Dosage: UNK
     Route: 058
     Dates: start: 20060403
  20. AMPHOTERICIN B [Suspect]
     Indication: ORAL FUNGAL INFECTION
     Dosage: UNK
     Route: 061
     Dates: start: 20060405
  21. DOCITON [Suspect]
     Dosage: 5 MG, UNK
     Route: 048
     Dates: start: 20060403
  22. LACTEOL [Suspect]
     Indication: DIARRHOEA
     Dosage: UNK
     Route: 048
     Dates: start: 20060411
  23. NEXIUM [Suspect]
     Indication: PROPHYLAXIS
     Dosage: 20 MG, 1X/DAY
     Route: 048
     Dates: start: 20060403
  24. MEROPENEM [Suspect]
     Indication: PNEUMONIA
     Dosage: UNK
     Route: 042
     Dates: start: 20060504, end: 20060514
  25. EUTHYROX [Suspect]
     Indication: HYPOTHYROIDISM
     Dosage: 100 UG, 1X/DAY
     Route: 048
     Dates: start: 20060404
  26. BRICANYL [Suspect]
     Indication: BRONCHIAL OBSTRUCTION
     Dosage: 0.5 ML, 4X/DAY
     Route: 058
     Dates: start: 20080430
  27. ACETYLCYSTEINE [Suspect]
     Indication: SECRETION DISCHARGE
     Dosage: 600 MG, 1X/DAY
     Route: 048
     Dates: start: 20060523
  28. LASIX [Suspect]
     Indication: POLYURIA
     Dosage: 40 MG, 1X/DAY
     Route: 042
     Dates: start: 20060526
  29. RINGER LOSUNG [Suspect]
     Indication: ELECTROLYTE SUBSTITUTION THERAPY
     Dosage: UNK
     Route: 042
     Dates: start: 20080526
  30. GLUCOSE [Concomitant]
     Indication: NUTRITIONAL SUPPORT
     Dosage: UNK
     Dates: start: 20080418, end: 20080430
  31. GERNEBCIN [Concomitant]
     Indication: PNEUMONIA
     Dosage: 120 MG, 2X/DAY
     Route: 042
     Dates: start: 20060427, end: 20060502
  32. GERNEBCIN [Concomitant]
     Indication: COLITIS
  33. TRUXAL [Concomitant]
     Indication: RESTLESSNESS
     Dosage: 2 ML, 1X/DAY
     Route: 048
     Dates: start: 20060403, end: 20060502
  34. PRIMAXIN [Concomitant]
     Indication: PNEUMONIA
     Dosage: 1 G, 3X/DAY
     Route: 042
     Dates: start: 20060424, end: 20060503
  35. METRONIDAZOLE HCL [Concomitant]
     Indication: PNEUMONIA
     Dosage: 0.5 MG, UNK
     Route: 048
     Dates: start: 20060424, end: 20060508
  36. METRONIDAZOLE HCL [Concomitant]
     Indication: GASTROINTESTINAL INFECTION
  37. TAVOR [Concomitant]
     Indication: RESTLESSNESS
     Dosage: 0.5 MG, UNK
     Dates: start: 20080417, end: 20080512
  38. NOVALGIN [Concomitant]
     Dosage: 1 G, 4X/DAY
     Route: 042
     Dates: start: 20060430, end: 20060501
  39. ENOXAPARIN SODIUM [Concomitant]
     Indication: THROMBOSIS PROPHYLAXIS
     Dosage: UNK
     Dates: start: 20060430, end: 20060502
  40. SUPRACYCLIN TABLET [Concomitant]
     Indication: PNEUMONIA
     Dosage: 100 MG, 1X/DAY
     Route: 048
     Dates: start: 20060503, end: 20060504
  41. TOBRA ^CELL PHARM^ [Concomitant]
     Indication: PNEUMONIA
     Dosage: UNK
     Route: 042
     Dates: start: 20060503, end: 20060507

REACTIONS (4)
  - CYSTITIS [None]
  - GASTROENTERITIS [None]
  - PNEUMONIA [None]
  - STEVENS-JOHNSON SYNDROME [None]
